FAERS Safety Report 15853542 (Version 1)
Quarter: 2019Q1

REPORT INFORMATION
  Report Type: Report from Study
  Country: CA (occurrence: CA)
  Receive Date: 20190122
  Receipt Date: 20190122
  Transmission Date: 20190417
  Serious: Yes (Other)
  Sender: FDA-Public Use
  Company Number: CA-GLAXOSMITHKLINE-CA2018GSK185421

PATIENT
  Sex: Female

DRUGS (3)
  1. PREDNISONE. [Suspect]
     Active Substance: PREDNISONE
     Indication: PRODUCT USED FOR UNKNOWN INDICATION
     Dosage: UNK
  2. MEPOLIZUMAB [Suspect]
     Active Substance: MEPOLIZUMAB
     Indication: ASTHMA
     Dosage: 100 MG, Z, MONTHLY
     Route: 042
     Dates: start: 20180516, end: 20180912
  3. VENTOLIN [Suspect]
     Active Substance: ALBUTEROL SULFATE
     Indication: ASTHMA
     Dosage: UNK

REACTIONS (11)
  - Osteoporosis [Unknown]
  - Asthma [Unknown]
  - Fatigue [Unknown]
  - Wheezing [Unknown]
  - Nausea [Unknown]
  - Dyspnoea [Unknown]
  - Malaise [Unknown]
  - Sleep disorder due to a general medical condition [Unknown]
  - Type 1 diabetes mellitus [Unknown]
  - Nasopharyngitis [Unknown]
  - Loss of personal independence in daily activities [Unknown]
